FAERS Safety Report 8329999-8 (Version None)
Quarter: 2012Q2

REPORT INFORMATION
  Report Type: 
  Country: None (occurrence: None)
  Receive Date: 20120502
  Receipt Date: 20120426
  Transmission Date: 20120825
  Serious: Yes (Death, Other)
  Sender: FDA-Public Use
  Company Number: CN-PFIZER INC-2012104042

PATIENT
  Age: 84 Year
  Sex: Male

DRUGS (8)
  1. ISOSORBIDE DINITRATE [Concomitant]
  2. LIPITOR [Suspect]
     Indication: MYOCARDIAL INFARCTION
  3. ACETYLSALICYLIC ACID [Concomitant]
  4. LIPITOR [Suspect]
     Indication: CORONARY ARTERY DISEASE
     Dosage: 20 MG, 1X/DAY
     Route: 048
     Dates: start: 20120207, end: 20120220
  5. DIGOXIN [Concomitant]
  6. SPIRONOLACTONE [Concomitant]
  7. METOPROLOL TARTRATE [Concomitant]
  8. FUROSEMIDE [Concomitant]

REACTIONS (3)
  - CARDIAC FAILURE [None]
  - CARDIO-RESPIRATORY ARREST [None]
  - ALANINE AMINOTRANSFERASE INCREASED [None]
